FAERS Safety Report 18426662 (Version 2)
Quarter: 2020Q4

REPORT INFORMATION
  Report Type: Spontaneous
  Country: US (occurrence: US)
  Receive Date: 20201026
  Receipt Date: 20201105
  Transmission Date: 20210114
  Serious: No
  Sender: FDA-Public Use
  Company Number: US-BEH-2020123831

PATIENT
  Sex: Female

DRUGS (6)
  1. HUMATE-P [Suspect]
     Active Substance: HUMAN COAGULATION FACTOR VIII/VON WILLEBRAND FACTOR COMPLEX
     Dosage: 950 INTERNATIONAL UNIT, PRN
     Route: 042
     Dates: start: 202009
  2. HUMATE-P [Suspect]
     Active Substance: HUMAN COAGULATION FACTOR VIII/VON WILLEBRAND FACTOR COMPLEX
     Dosage: 950 INTERNATIONAL UNIT, PRN
     Route: 042
     Dates: start: 202009
  3. HUMATE-P [Suspect]
     Active Substance: HUMAN COAGULATION FACTOR VIII/VON WILLEBRAND FACTOR COMPLEX
     Indication: VON WILLEBRAND^S DISEASE
     Dosage: 1750 INTERNATIONAL UNIT, PRN
     Route: 042
     Dates: start: 202009
  4. HUMATE-P [Suspect]
     Active Substance: HUMAN COAGULATION FACTOR VIII/VON WILLEBRAND FACTOR COMPLEX
     Dosage: UNK
     Route: 065
  5. HUMATE-P [Suspect]
     Active Substance: HUMAN COAGULATION FACTOR VIII/VON WILLEBRAND FACTOR COMPLEX
     Dosage: UNK
     Route: 065
  6. HUMATE-P [Suspect]
     Active Substance: HUMAN COAGULATION FACTOR VIII/VON WILLEBRAND FACTOR COMPLEX
     Indication: VON WILLEBRAND^S DISEASE
     Dosage: 1750 INTERNATIONAL UNIT, PRN
     Route: 042
     Dates: start: 202009

REACTIONS (3)
  - Device issue [Unknown]
  - No adverse event [Unknown]
  - Product preparation issue [Unknown]
